FAERS Safety Report 4840036-X (Version None)
Quarter: 2005Q4

REPORT INFORMATION
  Report Type: 
  Country: None (occurrence: None)
  Receive Date: 20051125
  Receipt Date: 20051110
  Transmission Date: 20060501
  Serious: Yes (Other)
  Sender: FDA-Public Use
  Company Number: CA-2005-023564

PATIENT
  Age: 48 Year
  Sex: Male
  Weight: 96 kg

DRUGS (5)
  1. FLUDARA [Suspect]
     Indication: CHRONIC LYMPHOCYTIC LEUKAEMIA
     Dosage: 55 MG, CYCLE X 5D, INTRAVENOUS
     Route: 042
     Dates: start: 20050314, end: 20050801
  2. VALTREX [Concomitant]
  3. SEPTRA DS [Concomitant]
  4. ATIVAN [Concomitant]
  5. LOSEC/CAN/ (OMEPRAZOLE MAGNESIUM) [Concomitant]

REACTIONS (1)
  - HYPOTHYROIDISM [None]
